FAERS Safety Report 18506815 (Version 1)
Quarter: 2020Q4

REPORT INFORMATION
  Report Type: Spontaneous
  Country: AU (occurrence: AU)
  Receive Date: 20201114
  Receipt Date: 20201114
  Transmission Date: 20210114
  Serious: No
  Sender: FDA-Public Use
  Company Number: None

PATIENT
  Age: 60 Year
  Sex: Female
  Weight: 90 kg

DRUGS (1)
  1. PRILACE (RAMIPRIL) [Suspect]
     Active Substance: RAMIPRIL
     Indication: BLOOD PRESSURE ABNORMAL
     Dosage: ?          QUANTITY:1 TABLET(S);?
     Route: 048
     Dates: start: 20200511, end: 20201113

REACTIONS (4)
  - Throat irritation [None]
  - Tinnitus [None]
  - Drug ineffective [None]
  - Cough [None]

NARRATIVE: CASE EVENT DATE: 20200611
